FAERS Safety Report 11281195 (Version 2)
Quarter: 2015Q3

REPORT INFORMATION
  Report Type: Spontaneous
  Country: JP (occurrence: JP)
  Receive Date: 20150717
  Receipt Date: 20150805
  Transmission Date: 20151125
  Serious: Yes (Life-Threatening)
  Sender: FDA-Public Use
  Company Number: JP-PFIZER INC-2015236265

PATIENT

DRUGS (2)
  1. ANCARON [Suspect]
     Active Substance: AMIODARONE HYDROCHLORIDE
     Dosage: UNK
     Route: 048
  2. ONOACT [Concomitant]
     Active Substance: LANDIOLOL HYDROCHLORIDE
     Dosage: UNK

REACTIONS (1)
  - Liver disorder [Recovering/Resolving]
